FAERS Safety Report 13904778 (Version 2)
Quarter: 2017Q3

REPORT INFORMATION
  Report Type: Report from Study
  Country: US (occurrence: US)
  Receive Date: 20170825
  Receipt Date: 20170928
  Transmission Date: 20171127
  Serious: Yes (Hospitalization, Other)
  Sender: FDA-Public Use
  Company Number: US-GILEAD-2017-0289989

PATIENT
  Age: 60 Year
  Sex: Female

DRUGS (22)
  1. CELECOXIB. [Concomitant]
     Active Substance: CELECOXIB
  2. XARELTO [Concomitant]
     Active Substance: RIVAROXABAN
  3. AMLODIPINE BESYLATE AND VALSARTAN [Concomitant]
     Active Substance: AMLODIPINE BESYLATE\VALSARTAN
  4. LANTUS [Concomitant]
     Active Substance: INSULIN GLARGINE
  5. PROAIR HFA [Concomitant]
     Active Substance: ALBUTEROL SULFATE
  6. VITAMIN D3 [Concomitant]
     Active Substance: CHOLECALCIFEROL
  7. AMBRISENTAN [Suspect]
     Active Substance: AMBRISENTAN
     Indication: PULMONARY HYPERTENSION
     Dosage: 5 MG, QD
     Route: 065
     Dates: start: 20161202
  8. LISINOPRIL. [Concomitant]
     Active Substance: LISINOPRIL
  9. OMEPRAZOLE. [Concomitant]
     Active Substance: OMEPRAZOLE
  10. ALPRAZOLAM. [Concomitant]
     Active Substance: ALPRAZOLAM
  11. POTASSIUM CHLORIDE. [Concomitant]
     Active Substance: POTASSIUM CHLORIDE
  12. OXYCODONE [Concomitant]
     Active Substance: OXYCODONE
  13. PRAVASTATIN. [Concomitant]
     Active Substance: PRAVASTATIN
  14. TIZANIDINE. [Concomitant]
     Active Substance: TIZANIDINE
  15. FUROSEMIDE. [Concomitant]
     Active Substance: FUROSEMIDE
  16. MUCINEX [Concomitant]
     Active Substance: GUAIFENESIN
  17. SYMBICORT [Concomitant]
     Active Substance: BUDESONIDE\FORMOTEROL FUMARATE DIHYDRATE
  18. LIDOCAINE. [Concomitant]
     Active Substance: LIDOCAINE
  19. MORPHINE SULFATE. [Concomitant]
     Active Substance: MORPHINE SULFATE
  20. MONTELUKAST SODIUM. [Concomitant]
     Active Substance: MONTELUKAST SODIUM
  21. PREDNISONE. [Concomitant]
     Active Substance: PREDNISONE
  22. SILDENAFIL. [Concomitant]
     Active Substance: SILDENAFIL

REACTIONS (2)
  - Oxygen saturation abnormal [Recovered/Resolved]
  - Dyspnoea [Recovered/Resolved]
